FAERS Safety Report 4528104-3 (Version None)
Quarter: 2004Q4

REPORT INFORMATION
  Report Type: 
  Country: None (occurrence: None)
  Receive Date: 20041130
  Receipt Date: 20040727
  Transmission Date: 20050328
  Serious: No
  Sender: FDA-Public Use
  Company Number: WAES 0407USA02288

PATIENT
  Age: 75 Year
  Sex: Male
  Weight: 61.6892 kg

DRUGS (3)
  1. ZETIA [Suspect]
     Indication: HYPERLIPIDAEMIA
     Dosage: 10 MG/DAILY/PO; 10 MG/ QOD
     Route: 048
     Dates: start: 20030203
  2. NIACIN [Concomitant]
  3. ASPIRIN [Concomitant]

REACTIONS (2)
  - ARTHRALGIA [None]
  - MYALGIA [None]
